FAERS Safety Report 8084546-3 (Version None)
Quarter: 2012Q1

REPORT INFORMATION
  Report Type: 
  Country: None (occurrence: None)
  Receive Date: 20120128
  Receipt Date: 20110311
  Transmission Date: 20120608
  Serious: Yes (Other)
  Sender: FDA-Public Use
  Company Number: US-ABBOTT-11P-163-0711977-00

PATIENT
  Sex: Female

DRUGS (12)
  1. HUMIRA [Suspect]
     Indication: PSORIATIC ARTHROPATHY
     Dates: start: 20100901, end: 20110101
  2. HUMIRA [Suspect]
     Indication: PSORIASIS
  3. OXYCONTIN [Concomitant]
     Indication: PAIN
  4. DEXEDRINE [Concomitant]
     Indication: PRODUCT USED FOR UNKNOWN INDICATION
  5. TRAZODONE HCL [Concomitant]
     Indication: DEPRESSION
  6. OMEPRAZOLE [Concomitant]
     Indication: GASTROOESOPHAGEAL REFLUX DISEASE
  7. TRAZODONE HCL [Concomitant]
     Indication: ANXIETY
  8. SODIUM CHLORIDE [Concomitant]
     Indication: BLOOD SODIUM DECREASED
  9. CLONAZEPAM [Concomitant]
     Indication: ANXIETY
  10. LISINOPRIL [Concomitant]
     Indication: HYPERTENSION
  11. POTASSIUM CHLORIDE [Concomitant]
     Indication: BLOOD POTASSIUM DECREASED
  12. LEVOXYL [Concomitant]
     Indication: HYPOTHYROIDISM

REACTIONS (3)
  - UPPER LIMB FRACTURE [None]
  - ILL-DEFINED DISORDER [None]
  - FALL [None]
